FAERS Safety Report 6295803-5 (Version None)
Quarter: 2009Q4

REPORT INFORMATION
  Report Type: 
  Country: None (occurrence: None)
  Receive Date: 20090803
  Receipt Date: 20090803
  Transmission Date: 20100525
  Serious: No
  Sender: FDA-Public Use
  Company Number: None

PATIENT
  Age: 65 Year
  Sex: Male

DRUGS (4)
  1. AMOXICILLIN AND CLAVULANATE POTASSIUM [Suspect]
     Dosage: 875 MG TABLETS ONE TAB BID
     Dates: start: 20070906, end: 20070910
  2. AMOXICILLIN AND CLAVULANATE POTASSIUM [Suspect]
     Dosage: 875 MG TABLETS ONE TAB BID
     Dates: start: 20071002
  3. KETEK [Suspect]
     Dosage: TWO 400 MG TABS DAILY
     Dates: start: 20070927, end: 20070928
  4. METHYLPREDNISOLONE [Concomitant]

REACTIONS (6)
  - ALANINE AMINOTRANSFERASE INCREASED [None]
  - BLOOD ALKALINE PHOSPHATASE INCREASED [None]
  - CHROMATURIA [None]
  - FAECES DISCOLOURED [None]
  - LIVER INJURY [None]
  - MALAISE [None]
